FAERS Safety Report 9199778 (Version 1)
Quarter: 2013Q1

REPORT INFORMATION
  Report Type: Spontaneous
  Country: US (occurrence: US)
  Receive Date: 20130328
  Receipt Date: 20130328
  Transmission Date: 20140127
  Serious: Yes (Other)
  Sender: FDA-Public Use
  Company Number: US-RB-051446-13

PATIENT
  Age: 14 Year
  Sex: Female

DRUGS (2)
  1. MUCINEX UNKNOWN TYPE [Suspect]
     Indication: DRUG ABUSE
     Route: 048
  2. DELSYM [Suspect]
     Indication: DRUG ABUSE
     Route: 048

REACTIONS (3)
  - Drug abuse [Unknown]
  - Feeling abnormal [Unknown]
  - Unevaluable event [Unknown]
